FAERS Safety Report 8613657-6 (Version None)
Quarter: 2012Q3

REPORT INFORMATION
  Report Type: 
  Country: None (occurrence: None)
  Receive Date: 20120823
  Receipt Date: 20120809
  Transmission Date: 20120928
  Serious: Yes (Hospitalization)
  Sender: FDA-Public Use
  Company Number: FR-009507513-1208FRA006699

PATIENT

DRUGS (5)
  1. INVANZ [Suspect]
     Indication: URINARY TRACT INFECTION
     Dosage: 1 G, QD
     Route: 042
     Dates: start: 20120703, end: 20120710
  2. LASIX [Concomitant]
     Dosage: 40 MG, QD
     Route: 048
     Dates: start: 20120626
  3. CALCIDOSE VITAMINE D [Concomitant]
     Dosage: 2 DF, QD
     Route: 048
     Dates: start: 20120626
  4. ACETAMINOPHEN [Concomitant]
     Dosage: 1 G, TID
     Dates: start: 20120628
  5. POTASSIUM CHLORIDE [Suspect]
     Indication: HYPOKALAEMIA
     Dosage: 600 MG, BID
     Route: 048
     Dates: start: 20120704, end: 20120712

REACTIONS (2)
  - RASH MACULAR [None]
  - PALATAL OEDEMA [None]
